FAERS Safety Report 7343468-3 (Version None)
Quarter: 2011Q1

REPORT INFORMATION
  Report Type: 
  Country: None (occurrence: None)
  Receive Date: 20110310
  Receipt Date: 20100126
  Transmission Date: 20110831
  Serious: No
  Sender: FDA-Public Use
  Company Number: A0841427A

PATIENT
  Age: 51 Year
  Sex: Male

DRUGS (1)
  1. NICOTINE POLACRILEX [Suspect]
     Dates: start: 20100101

REACTIONS (1)
  - DRUG INEFFECTIVE [None]
